APPROVED DRUG PRODUCT: CLOZAPINE
Active Ingredient: CLOZAPINE
Strength: 100MG
Dosage Form/Route: TABLET;ORAL
Application: A202873 | Product #002 | TE Code: AB
Applicant: ACCORD HEALTHCARE INC
Approved: Nov 25, 2015 | RLD: No | RS: No | Type: RX